FAERS Safety Report 18344980 (Version 1)
Quarter: 2020Q4

REPORT INFORMATION
  Report Type: Spontaneous
  Country: US (occurrence: US)
  Receive Date: 20201005
  Receipt Date: 20201005
  Transmission Date: 20210114
  Serious: No
  Sender: FDA-Public Use
  Company Number: US-BAYER-2020-210918

PATIENT
  Age: 2 Year
  Sex: Male

DRUGS (3)
  1. IRON ORAL [Suspect]
     Active Substance: IRON
  2. ADEMPAS [Suspect]
     Active Substance: RIOCIGUAT
     Dosage: UNK
     Route: 048
     Dates: start: 20200928
  3. LETAIRIS [Suspect]
     Active Substance: AMBRISENTAN

REACTIONS (3)
  - Vomiting [Unknown]
  - Accidental exposure to product by child [Unknown]
  - Crying [Unknown]

NARRATIVE: CASE EVENT DATE: 20200928
